FAERS Safety Report 7153135-7 (Version None)
Quarter: 2010Q4

REPORT INFORMATION
  Report Type: 
  Country: None (occurrence: None)
  Receive Date: 20101208
  Receipt Date: 20101208
  Transmission Date: 20110411
  Serious: Yes (Other)
  Sender: FDA-Public Use
  Company Number: None

PATIENT
  Age: 56 Year
  Sex: Male
  Weight: 90.7194 kg

DRUGS (1)
  1. VICTOZA [Suspect]
     Indication: BLOOD INSULIN ABNORMAL
     Dosage: 1.2 MG DAILY SQ
     Route: 058
     Dates: start: 20101204, end: 20101207

REACTIONS (1)
  - DIARRHOEA [None]
